FAERS Safety Report 6242036-4 (Version None)
Quarter: 2009Q2

REPORT INFORMATION
  Report Type: 
  Country: None (occurrence: None)
  Receive Date: 20090623
  Receipt Date: 20090616
  Transmission Date: 20091009
  Serious: Yes (Other)
  Sender: FDA-Public Use
  Company Number: PHHY2009DE24019

PATIENT
  Age: 54 Year
  Sex: Male

DRUGS (3)
  1. ZOMETA [Suspect]
     Indication: MULTIPLE MYELOMA
     Dosage: 20 MG/DAY
     Route: 048
     Dates: start: 20080913, end: 20090324
  2. DEXAMETHASONE [Concomitant]
     Dosage: 4 MG/DAY
     Dates: start: 20010911, end: 20090526
  3. REVLIMID [Concomitant]
     Dosage: 25 MG/DAY
     Route: 048
     Dates: start: 20080813, end: 20090323

REACTIONS (1)
  - OSTEONECROSIS [None]
